FAERS Safety Report 5448352-8 (Version None)
Quarter: 2007Q3

REPORT INFORMATION
  Report Type: 
  Country: None (occurrence: None)
  Receive Date: 20070906
  Receipt Date: 20070903
  Transmission Date: 20080115
  Serious: Yes (Other)
  Sender: FDA-Public Use
  Company Number: LTI2007A00130

PATIENT
  Age: 57 Year
  Sex: Female

DRUGS (16)
  1. ACTOS [Suspect]
     Indication: TYPE 2 DIABETES MELLITUS
     Dosage: 30 MG (30 MG, 1 IN 1 D) ORAL
     Route: 048
     Dates: start: 20040601, end: 20070601
  2. DIAMICRON (GLICLAZIDE) [Concomitant]
  3. ASPIRIN [Concomitant]
  4. EXTRANASE (BROMELAINS) [Concomitant]
  5. FOSAVANCE (ALENDRONATE SODIUM) [Concomitant]
  6. PROPRANOLOL [Concomitant]
  7. CARDIOCALM (PHENOBARBITAL, QUININE HYDROBROMIDE, VALERIANA OFFICINALIS [Concomitant]
  8. FENOFIBRATE [Concomitant]
  9. FOLIC ACID [Concomitant]
  10. FORADIL [Concomitant]
  11. QVAR [Concomitant]
  12. AIROMIR (SALBUTAMOL SULFATE) [Concomitant]
  13. ATHYMIL (MIANSERIN HYDROCHLORIDE) [Concomitant]
  14. DOGMATYL (SULPIRIDE) [Concomitant]
  15. CLONAZEPAM [Concomitant]
  16. ZOXAN (FURAZOLIDONE, TINIDAZOLE) [Concomitant]

REACTIONS (10)
  - APPETITE DISORDER [None]
  - ARTHRALGIA [None]
  - ASTHENIA [None]
  - BULIMIA NERVOSA [None]
  - FALL [None]
  - JOINT DISLOCATION [None]
  - RADIUS FRACTURE [None]
  - ULNA FRACTURE [None]
  - UPPER LIMB FRACTURE [None]
  - WEIGHT INCREASED [None]
